FAERS Safety Report 5008261-5 (Version None)
Quarter: 2006Q2

REPORT INFORMATION
  Report Type: 
  Country: None (occurrence: None)
  Receive Date: 20060523
  Receipt Date: 20060515
  Transmission Date: 20061013
  Serious: Yes (Other)
  Sender: FDA-Public Use
  Company Number: PHRM2006FR01610

PATIENT
  Age: 59 Year
  Sex: Female

DRUGS (2)
  1. TEGRETOL [Suspect]
     Indication: CONVULSION PROPHYLAXIS
     Dosage: 400 MG, BID
     Route: 048
     Dates: start: 19920101
  2. KENZEN [Concomitant]
     Indication: HYPERTENSION

REACTIONS (2)
  - BENIGN NEOPLASM OF THYROID GLAND [None]
  - THYROID NODULE REMOVAL [None]
